FAERS Safety Report 21548917 (Version 1)
Quarter: 2022Q4

REPORT INFORMATION
  Report Type: Spontaneous
  Country: DE (occurrence: DE)
  Receive Date: 20221103
  Receipt Date: 20221103
  Transmission Date: 20230113
  Serious: Yes (Hospitalization)
  Sender: FDA-Public Use
  Company Number: DE-ADRED-05720-01

PATIENT
  Age: 71 Year
  Sex: Female
  Weight: 71 kg

DRUGS (9)
  1. HYDROCHLOROTHIAZIDE\RAMIPRIL [Interacting]
     Active Substance: HYDROCHLOROTHIAZIDE\RAMIPRIL
     Indication: Product used for unknown indication
     Dosage: 25|5 MG, 1-0-0-0, TABLETS
     Route: 048
  2. TORSEMIDE [Interacting]
     Active Substance: TORSEMIDE
     Indication: Product used for unknown indication
     Dosage: 10 MG, 1-0-0-0, TABLETS
     Route: 048
  3. PREDNISOLONE [Interacting]
     Active Substance: PREDNISOLONE
     Indication: Product used for unknown indication
     Dosage: 5 MILLIGRAM, 1-0-0-0, TABLETS
     Route: 048
  4. BISOPROLOL [Concomitant]
     Active Substance: BISOPROLOL
     Dosage: 5 MILLIGRAM, 1-0-0-0, TABLETS
     Route: 048
  5. LEVOTHYROXINE SODIUM [Concomitant]
     Active Substance: LEVOTHYROXINE SODIUM
     Dosage: 75 MICROGRAM, ALTERNATING EVERY 2 DAYS
     Route: 048
  6. LEVOTHYROXINE SODIUM [Concomitant]
     Active Substance: LEVOTHYROXINE SODIUM
     Dosage: 50 MICROGRAM, ALTERNATING EVERY 2 DAYS
     Route: 048
  7. METAMIZOL [Concomitant]
     Active Substance: METAMIZOLE SODIUM
     Dosage: 500 MG/ML, 30-30-30-0, DROPS
     Route: 048
  8. SIMVASTATIN [Concomitant]
     Active Substance: SIMVASTATIN
     Dosage: 40 MILLIGRAM, 0-0-0.5-0, TABLETS
     Route: 048
  9. ADALIMUMAB [Concomitant]
     Active Substance: ADALIMUMAB
     Dosage: 40 MILLIGRAM, Q2W, EVERY 14 DAYS, PRE-FILLED SYRINGES
     Route: 058

REACTIONS (5)
  - Renal impairment [Unknown]
  - Blood creatinine increased [Unknown]
  - Product prescribing error [Unknown]
  - Labelled drug-drug interaction medication error [Unknown]
  - Product monitoring error [Unknown]
